FAERS Safety Report 24056176 (Version 1)
Quarter: 2024Q3

REPORT INFORMATION
  Report Type: Spontaneous
  Country: US (occurrence: None)
  Receive Date: 20240704
  Receipt Date: 20240704
  Transmission Date: 20241017
  Serious: Yes (Hospitalization)
  Sender: Public
  Company Number: None

PATIENT
  Sex: Female
  Weight: 94.8 kg

DRUGS (4)
  1. FLUOROURACIL [Suspect]
     Active Substance: FLUOROURACIL
     Dates: end: 20240621
  2. LEUCOVORIN CALCIUM [Suspect]
     Active Substance: LEUCOVORIN CALCIUM
     Dates: end: 20240619
  3. NIVOLUMAB [Suspect]
     Active Substance: NIVOLUMAB
     Dates: end: 20240619
  4. ELOXATIN [Suspect]
     Active Substance: OXALIPLATIN
     Dates: end: 20240619

REACTIONS (7)
  - Syncope [None]
  - Skin discolouration [None]
  - Superior vena cava syndrome [None]
  - Device related thrombosis [None]
  - Headache [None]
  - Urinary tract infection [None]
  - Haematuria [None]

NARRATIVE: CASE EVENT DATE: 20240624
